FAERS Safety Report 4945694-7 (Version None)
Quarter: 2006Q1

REPORT INFORMATION
  Report Type: 
  Country: None (occurrence: None)
  Receive Date: 20060316
  Receipt Date: 20060222
  Transmission Date: 20060701
  Serious: Yes (Other)
  Sender: FDA-Public Use
  Company Number: JP-AVENTIS-200611734GDDC

PATIENT
  Age: 36 Year
  Sex: Male
  Weight: 73 kg

DRUGS (23)
  1. DOCETAXEL [Suspect]
     Indication: TESTICULAR GERM CELL CANCER
     Route: 042
  2. CISPLATIN [Suspect]
     Indication: TESTICULAR GERM CELL CANCER
     Route: 042
  3. CISPLATIN [Suspect]
     Route: 042
  4. ETOPOSIDE [Suspect]
     Indication: TESTICULAR GERM CELL CANCER
     Route: 042
  5. ETOPOSIDE [Suspect]
     Route: 042
  6. ETOPOSIDE [Suspect]
     Route: 042
  7. ETOPOSIDE [Suspect]
     Indication: STEM CELL TRANSPLANT
     Route: 042
  8. ETOPOSIDE [Suspect]
     Route: 042
  9. ETOPOSIDE [Suspect]
     Route: 042
  10. BLEOMYCIN [Suspect]
     Indication: TESTICULAR GERM CELL CANCER
     Route: 042
  11. IFOSFAMIDE [Suspect]
     Indication: STEM CELL TRANSPLANT
     Dosage: DOSE UNIT: GRAM PER SQUARE METRE
     Route: 042
  12. IFOSFAMIDE [Suspect]
     Dosage: DOSE UNIT: GRAM PER SQUARE METRE
     Route: 042
  13. IFOSFAMIDE [Suspect]
     Indication: BLOOD HUMAN CHORIONIC GONADOTROPIN INCREASED
     Dosage: DOSE UNIT: GRAM PER SQUARE METRE
     Route: 042
  14. IFOSFAMIDE [Suspect]
     Dosage: DOSE UNIT: GRAM PER SQUARE METRE
     Route: 042
  15. CARBOPLATIN [Suspect]
     Indication: BLOOD HUMAN CHORIONIC GONADOTROPIN INCREASED
     Route: 042
  16. GEMCITABINE [Suspect]
     Indication: STEM CELL TRANSPLANT
     Route: 042
  17. NEDAPLATIN [Suspect]
     Indication: STEM CELL TRANSPLANT
     Route: 042
  18. METHOTREXATE [Suspect]
     Indication: STEM CELL TRANSPLANT
     Route: 042
  19. DACTINOMYCIN [Suspect]
     Indication: STEM CELL TRANSPLANT
     Route: 042
  20. PACLITAXEL [Suspect]
     Indication: STEM CELL TRANSPLANT
     Route: 042
  21. IRINOTECAN HCL [Suspect]
     Indication: STEM CELL TRANSPLANT
     Route: 042
  22. IRINOTECAN HCL [Suspect]
     Route: 042
  23. RADIOTHERAPY [Concomitant]

REACTIONS (1)
  - MYELODYSPLASTIC SYNDROME [None]
